FAERS Safety Report 7205497-X (Version None)
Quarter: 2010Q4

REPORT INFORMATION
  Report Type: 
  Country: None (occurrence: None)
  Receive Date: 20101231
  Receipt Date: 20101221
  Transmission Date: 20110411
  Serious: Yes (Other)
  Sender: FDA-Public Use
  Company Number: CH-SANOFI-AVENTIS-2010SA077332

PATIENT
  Age: 56 Year
  Sex: Female

DRUGS (9)
  1. PLAVIX [Suspect]
     Route: 048
     Dates: start: 20101201
  2. TORSEMIDE [Suspect]
     Route: 048
     Dates: start: 20101201
  3. IRBESARTAN [Concomitant]
     Route: 048
  4. NEBIVOLOL HCL [Concomitant]
     Route: 048
  5. ALLOPURINOL [Concomitant]
     Route: 048
  6. FOLIC ACID [Concomitant]
     Route: 048
  7. EZETROL [Concomitant]
     Route: 048
  8. PRAVASTATIN [Concomitant]
     Route: 048
  9. THYROXIN [Concomitant]
     Route: 048

REACTIONS (2)
  - ASTHENIA [None]
  - PAIN IN EXTREMITY [None]
